FAERS Safety Report 16183680 (Version 2)
Quarter: 2019Q2

REPORT INFORMATION
  Report Type: Spontaneous
  Country: US (occurrence: US)
  Receive Date: 20190411
  Receipt Date: 20190605
  Transmission Date: 20190711
  Serious: Yes (Other)
  Sender: FDA-Public Use
  Company Number: US-BAYER-2019-069177

PATIENT
  Age: 55 Year
  Sex: Male

DRUGS (2)
  1. BETASERON [Suspect]
     Active Substance: INTERFERON BETA-1B
     Indication: MULTIPLE SCLEROSIS
     Dosage: 0.3 UNK
     Route: 058
  2. BETASERON [Suspect]
     Active Substance: INTERFERON BETA-1B
     Indication: MULTIPLE SCLEROSIS
     Dosage: 0.25 MG

REACTIONS (10)
  - Feeling abnormal [None]
  - Coordination abnormal [None]
  - Gait disturbance [None]
  - Musculoskeletal disorder [None]
  - Hemiparesis [None]
  - Affect lability [None]
  - Hypoaesthesia [None]
  - Mobility decreased [None]
  - Fatigue [None]
  - Multiple sclerosis relapse [None]
